FAERS Safety Report 8981418 (Version 1)
Quarter: 2012Q4

REPORT INFORMATION
  Report Type: 
  Country: US (occurrence: US)
  Receive Date: 20121221
  Receipt Date: 20121221
  Transmission Date: 20130627
  Serious: No
  Sender: FDA-Public Use
  Company Number: US-PFIZER INC-2012321855

PATIENT
  Sex: Male
  Weight: 108 kg

DRUGS (2)
  1. TIKOSYN [Suspect]
     Indication: ATRIAL FIBRILLATION
     Dosage: 500 ug, 2x/day
     Route: 048
     Dates: start: 201207
  2. AMIODARONE HCL [Suspect]
     Dosage: UNK

REACTIONS (2)
  - Lung disorder [Unknown]
  - Hearing impaired [Unknown]
